APPROVED DRUG PRODUCT: VALPROIC ACID
Active Ingredient: VALPROIC ACID
Strength: 250MG/5ML
Dosage Form/Route: SYRUP;ORAL
Application: A074060 | Product #001
Applicant: HIKMA PHARMACEUTICALS USA INC
Approved: Jan 13, 1995 | RLD: No | RS: No | Type: DISCN